FAERS Safety Report 7429249-0 (Version None)
Quarter: 2011Q2

REPORT INFORMATION
  Report Type: 
  Country: None (occurrence: None)
  Receive Date: 20110421
  Receipt Date: 20110413
  Transmission Date: 20111010
  Serious: Yes (Hospitalization)
  Sender: FDA-Public Use
  Company Number: US-ACTELION-A-NJ2011-45495

PATIENT

DRUGS (3)
  1. COUMADIN [Concomitant]
  2. TRACLEER [Suspect]
     Indication: PULMONARY ARTERIAL HYPERTENSION
     Dosage: UNK
     Route: 048
     Dates: start: 20101229
  3. REVATIO [Concomitant]

REACTIONS (4)
  - MEDICAL DEVICE COMPLICATION [None]
  - PULMONARY ARTERIAL HYPERTENSION [None]
  - DIARRHOEA [None]
  - DEHYDRATION [None]
